FAERS Safety Report 8493319-9 (Version None)
Quarter: 2012Q2

REPORT INFORMATION
  Report Type: 
  Country: None (occurrence: None)
  Receive Date: 20120402
  Receipt Date: 20091015
  Transmission Date: 20120825
  Serious: Yes (Other)
  Sender: FDA-Public Use
  Company Number: PHEH2008US11637

PATIENT
  Age: 54 Year
  Sex: Female

DRUGS (2)
  1. FOLTX (CYANOCOBALAMIN, FOLIC ACID, PYRIDOXINE) [Concomitant]
  2. EXFORGE [Suspect]
     Indication: HYPERTENSION
     Dosage: 320/5 MG
     Dates: start: 20081126, end: 20081209

REACTIONS (3)
  - EYE SWELLING [None]
  - PRURITUS [None]
  - LIP SWELLING [None]
